FAERS Safety Report 9970530 (Version 1)
Quarter: 2014Q1

REPORT INFORMATION
  Report Type: Report from Study
  Country: US (occurrence: US)
  Receive Date: 20140306
  Receipt Date: 20140306
  Transmission Date: 20141002
  Serious: No
  Sender: FDA-Public Use
  Company Number: US-ABBVIE-13P-163-1151640-00

PATIENT
  Age: 60 Year
  Sex: Female

DRUGS (5)
  1. HUMIRA [Suspect]
     Indication: RHEUMATOID ARTHRITIS
     Dates: start: 20130919
  2. ALLEGRA [Concomitant]
     Indication: HYPERSENSITIVITY
  3. LEVOTHYROXINE [Concomitant]
     Indication: THYROIDECTOMY
     Dosage: 137 MCG DAILY
  4. FUROSEMIDE [Concomitant]
     Indication: BLOOD PRESSURE
     Dosage: 20 MG DAILY
  5. VITAMIN D [Concomitant]
     Indication: VITAMIN D DECREASED

REACTIONS (3)
  - Dizziness [Not Recovered/Not Resolved]
  - Sinus headache [Not Recovered/Not Resolved]
  - Headache [Not Recovered/Not Resolved]
